FAERS Safety Report 6670307-6 (Version None)
Quarter: 2010Q2

REPORT INFORMATION
  Report Type: 
  Country: None (occurrence: None)
  Receive Date: 20100406
  Receipt Date: 20100323
  Transmission Date: 20101027
  Serious: Yes (Other)
  Sender: FDA-Public Use
  Company Number: GB-MYLANLABS-2010S1004967

PATIENT
  Age: 35 Year
  Sex: Male

DRUGS (5)
  1. BISOPROLOL [Suspect]
     Indication: DRUG USE FOR UNKNOWN INDICATION
  2. ATORVASTATIN CALCIUM [Suspect]
     Indication: DRUG USE FOR UNKNOWN INDICATION
  3. CHAMPIX /05703001/ [Suspect]
     Indication: DRUG USE FOR UNKNOWN INDICATION
  4. CLOPIDOGREL [Suspect]
     Indication: DRUG USE FOR UNKNOWN INDICATION
  5. PERINDOPRIL ERBUMINE [Suspect]
     Indication: DRUG USE FOR UNKNOWN INDICATION

REACTIONS (1)
  - BLOOD PRESSURE INCREASED [None]
